FAERS Safety Report 16491781 (Version 1)
Quarter: 2019Q2

REPORT INFORMATION
  Report Type: Spontaneous
  Country: SE (occurrence: SE)
  Receive Date: 20190628
  Receipt Date: 20190628
  Transmission Date: 20190711
  Serious: Yes (Hospitalization)
  Sender: FDA-Public Use
  Company Number: SE-TEVA-2019-SE-1069572

PATIENT
  Sex: Female

DRUGS (6)
  1. LERGIGAN (PROMETHAZINE HYDROCHLORIDE) [Suspect]
     Active Substance: PROMETHAZINE HYDROCHLORIDE
     Route: 048
     Dates: start: 20190401, end: 20190401
  2. ALIMEMAZINE [Suspect]
     Active Substance: TRIMEPRAZINE
     Route: 048
     Dates: start: 20190401, end: 20190401
  3. PROPAVAN [Suspect]
     Active Substance: PROPIOMAZINE
     Dosage: ^2 ST^
     Route: 048
     Dates: start: 20190401, end: 20190401
  4. ZOPICLONE [Suspect]
     Active Substance: ZOPICLONE
     Route: 048
     Dates: start: 20190401, end: 20190401
  5. LAMOTRIGINE. [Suspect]
     Active Substance: LAMOTRIGINE
     Dosage: ^4 ST^
     Route: 048
     Dates: start: 20190401, end: 20190401
  6. MELATONIN [Suspect]
     Active Substance: MELATONIN
     Dosage: ^4 ST^
     Route: 048
     Dates: start: 20190401, end: 20190401

REACTIONS (2)
  - Intentional overdose [Unknown]
  - Intentional self-injury [Unknown]

NARRATIVE: CASE EVENT DATE: 20190401
